FAERS Safety Report 13034093 (Version 1)
Quarter: 2016Q4

REPORT INFORMATION
  Report Type: Spontaneous
  Country: US (occurrence: US)
  Receive Date: 20161215
  Receipt Date: 20161215
  Transmission Date: 20170207
  Serious: No
  Sender: FDA-Public Use
  Company Number: None

PATIENT
  Age: 62 Year
  Sex: Male
  Weight: 71.3 kg

DRUGS (1)
  1. ELBASVIR/GRAZOPREVIR [Suspect]
     Active Substance: ELBASVIR\GRAZOPREVIR
     Indication: HEPATITIS C
     Route: 048
     Dates: start: 20161007, end: 20161026

REACTIONS (5)
  - Rash papular [None]
  - Pityriasis rosea [None]
  - Rash pruritic [None]
  - Eczema [None]
  - Drug eruption [None]

NARRATIVE: CASE EVENT DATE: 20161026
